FAERS Safety Report 26127227 (Version 1)
Quarter: 2025Q4

REPORT INFORMATION
  Report Type: Spontaneous
  Country: SG (occurrence: SG)
  Receive Date: 20251205
  Receipt Date: 20251205
  Transmission Date: 20260118
  Serious: Yes (Other)
  Sender: BAUSCH AND LOMB
  Company Number: SG-MLMSERVICE-20251121-PI722479-00177-1

PATIENT
  Age: 54 Year
  Sex: Female

DRUGS (2)
  1. HYDROCORTISONE [Suspect]
     Active Substance: HYDROCORTISONE
     Indication: Pituitary-dependent Cushing^s syndrome
     Dosage: TAPERING DOSE
     Route: 065
  2. HYDROCORTISONE [Suspect]
     Active Substance: HYDROCORTISONE
     Dosage: DRUG RE-INTRODUCED
     Route: 065

REACTIONS (2)
  - Steroid withdrawal syndrome [Recovering/Resolving]
  - Hypercalcaemia [Recovering/Resolving]
